FAERS Safety Report 5158574-1 (Version None)
Quarter: 2006Q4

REPORT INFORMATION
  Report Type: 
  Country: None (occurrence: None)
  Receive Date: 20061128
  Receipt Date: 20061115
  Transmission Date: 20070319
  Serious: Yes (Other)
  Sender: FDA-Public Use
  Company Number: GB-GLAXOSMITHKLINE-B0446641A

PATIENT
  Age: 70 Year
  Sex: Female

DRUGS (2)
  1. NIQUITIN CQ 2MG LOZENGE [Suspect]
     Indication: SMOKING CESSATION THERAPY
     Dosage: 20LOZ PER DAY
     Route: 002
     Dates: start: 20040101
  2. LORAZEPAM [Concomitant]
     Dosage: 1MG FOUR TIMES PER DAY
     Route: 048

REACTIONS (2)
  - DEPENDENCE [None]
  - WEIGHT INCREASED [None]
